FAERS Safety Report 5511094-4 (Version None)
Quarter: 2007Q4

REPORT INFORMATION
  Report Type: 
  Country: None (occurrence: None)
  Receive Date: 20071107
  Receipt Date: 20071025
  Transmission Date: 20080405
  Serious: Yes (Hospitalization)
  Sender: FDA-Public Use
  Company Number: 02100-JPN-07-0678

PATIENT
  Age: 70 Year
  Sex: Male

DRUGS (1)
  1. CILOSTAZOL [Suspect]
     Dosage: 200 MG, ORAL
     Route: 048

REACTIONS (2)
  - EOSINOPHILIC PNEUMONIA [None]
  - LYMPHOCYTE STIMULATION TEST POSITIVE [None]
